FAERS Safety Report 12849997 (Version 2)
Quarter: 2017Q2

REPORT INFORMATION
  Report Type: Spontaneous
  Country: US (occurrence: US)
  Receive Date: 20161014
  Receipt Date: 20170501
  Transmission Date: 20170830
  Serious: No
  Sender: FDA-Public Use
  Company Number: US-ROCHE-1756766

PATIENT
  Sex: Male

DRUGS (13)
  1. RANITIDINE. [Concomitant]
     Active Substance: RANITIDINE
  2. METFORMIN [Concomitant]
     Active Substance: METFORMIN HYDROCHLORIDE
  3. LANTUS [Concomitant]
     Active Substance: INSULIN GLARGINE
  4. ESBRIET [Suspect]
     Active Substance: PIRFENIDONE
     Indication: IDIOPATHIC PULMONARY FIBROSIS
     Route: 048
     Dates: start: 20160427
  5. FUROSEMIDE. [Concomitant]
     Active Substance: FUROSEMIDE
  6. ALLOPURINOL. [Concomitant]
     Active Substance: ALLOPURINOL
  7. IPRATROPIUM [Concomitant]
     Active Substance: IPRATROPIUM
  8. PLAVIX [Concomitant]
     Active Substance: CLOPIDOGREL BISULFATE
  9. PREDNISOLONE. [Concomitant]
     Active Substance: PREDNISOLONE
  10. PRAVASTATIN. [Concomitant]
     Active Substance: PRAVASTATIN
  11. RAMIPRIL. [Concomitant]
     Active Substance: RAMIPRIL
  12. FLUTICASONE. [Concomitant]
     Active Substance: FLUTICASONE
  13. HUMALOG [Concomitant]
     Active Substance: INSULIN LISPRO

REACTIONS (3)
  - Constipation [Unknown]
  - Dizziness [Unknown]
  - Nausea [Recovered/Resolved]
